FAERS Safety Report 9057183 (Version 4)
Quarter: 2013Q2

REPORT INFORMATION
  Report Type: Spontaneous
  Country: JP (occurrence: JP)
  Receive Date: 20130131
  Receipt Date: 20130419
  Transmission Date: 20140414
  Serious: Yes (Other)
  Sender: FDA-Public Use
  Company Number: JP-AMGEN-JPNSP2013006794

PATIENT
  Age: 52 Year
  Sex: Female

DRUGS (2)
  1. RANMARK [Suspect]
     Indication: PRODUCT USED FOR UNKNOWN INDICATION
     Dosage: 120 MG, QMO
     Route: 058
     Dates: start: 20121219
  2. HALAVEN [Suspect]
     Dosage: 1.4 MG, QWK
     Route: 042
     Dates: start: 20121219

REACTIONS (2)
  - Osteonecrosis of jaw [Unknown]
  - Pyrexia [Unknown]
